FAERS Safety Report 4938506-9 (Version None)
Quarter: 2006Q1

REPORT INFORMATION
  Report Type: 
  Country: None (occurrence: None)
  Receive Date: 20060309
  Receipt Date: 20060227
  Transmission Date: 20060701
  Serious: Yes (Hospitalization, Other)
  Sender: FDA-Public Use
  Company Number: US-BRISTOL-MYERS SQUIBB COMPANY-13296546

PATIENT
  Age: 68 Year
  Sex: Male
  Weight: 104 kg

DRUGS (3)
  1. COUMADIN [Suspect]
     Dates: start: 20050901
  2. INSULIN [Concomitant]
  3. REGULAR INSULIN [Concomitant]

REACTIONS (2)
  - BLOOD CREATININE INCREASED [None]
  - PERIPHERAL ARTERIAL OCCLUSIVE DISEASE [None]
